FAERS Safety Report 15518296 (Version 1)
Quarter: 2018Q4

REPORT INFORMATION
  Report Type: Spontaneous
  Country: US (occurrence: US)
  Receive Date: 20181017
  Receipt Date: 20181017
  Transmission Date: 20190205
  Serious: Yes (Death, Hospitalization)
  Sender: FDA-Public Use
  Company Number: US-SEBELA IRELAND LIMITED-2018SEB00247

PATIENT
  Age: 30 Year
  Sex: Male

DRUGS (1)
  1. AZATHIOPRINE. [Suspect]
     Active Substance: AZATHIOPRINE
     Indication: COLITIS ULCERATIVE
     Dosage: 50 MG, 2X/DAY
     Route: 065

REACTIONS (9)
  - Clostridium difficile colitis [Unknown]
  - Pneumonia [Unknown]
  - Hepatosplenic T-cell lymphoma [Fatal]
  - Hepatic failure [Fatal]
  - Acute leukaemia [Fatal]
  - Autoimmune haemolytic anaemia [Unknown]
  - Renal failure [Fatal]
  - Thrombocytopenia [Unknown]
  - Staphylococcal infection [Unknown]
